FAERS Safety Report 19810406 (Version 1)
Quarter: 2021Q3

REPORT INFORMATION
  Report Type: Spontaneous
  Country: US (occurrence: US)
  Receive Date: 20210909
  Receipt Date: 20210909
  Transmission Date: 20211014
  Serious: No
  Sender: FDA-Public Use
  Company Number: US-VYNE PHARMACEUTICALS INC-2021-VYNE-US003316

PATIENT

DRUGS (1)
  1. ZILXI [Suspect]
     Active Substance: MINOCYCLINE HYDROCHLORIDE
     Indication: ROSACEA
     Dosage: UNK
     Route: 061
     Dates: start: 2021

REACTIONS (3)
  - Rosacea [Not Recovered/Not Resolved]
  - Expired product administered [Unknown]
  - Application site erythema [Not Recovered/Not Resolved]

NARRATIVE: CASE EVENT DATE: 2021
